FAERS Safety Report 23678934 (Version 2)
Quarter: 2024Q2

REPORT INFORMATION
  Report Type: Spontaneous
  Country: BE (occurrence: BE)
  Receive Date: 20240327
  Receipt Date: 20240408
  Transmission Date: 20240717
  Serious: Yes (Hospitalization)
  Sender: FDA-Public Use
  Company Number: BE-PFIZER INC-202400063445

PATIENT
  Age: 67 Year
  Sex: Male

DRUGS (1)
  1. XALKORI [Suspect]
     Active Substance: CRIZOTINIB
     Indication: Non-small cell lung cancer
     Dosage: DAILY DOSE, 2NITE
     Dates: start: 2020, end: 20240315

REACTIONS (1)
  - Pleural effusion [Recovered/Resolved with Sequelae]
